FAERS Safety Report 13169833 (Version 1)
Quarter: 2017Q1

REPORT INFORMATION
  Report Type: Spontaneous
  Country: US (occurrence: US)
  Receive Date: 20170131
  Receipt Date: 20170131
  Transmission Date: 20170428
  Serious: No
  Sender: FDA-Public Use
  Company Number: US-ABBVIE-16K-163-1624245-00

PATIENT
  Age: 41 Year
  Sex: Female
  Weight: 74.46 kg

DRUGS (2)
  1. HUMIRA [Suspect]
     Active Substance: ADALIMUMAB
     Indication: RHEUMATOID ARTHRITIS
     Dosage: FOR ALMOST A YEAR
     Route: 058
     Dates: start: 2015, end: 2015
  2. HUMIRA [Suspect]
     Active Substance: ADALIMUMAB
     Indication: CROHN^S DISEASE
     Dosage: THREE MONTHS FROM START DATE
     Route: 058
     Dates: start: 2015

REACTIONS (4)
  - Joint range of motion decreased [Recovering/Resolving]
  - Device issue [Unknown]
  - Arthritis [Recovering/Resolving]
  - Device issue [Unknown]

NARRATIVE: CASE EVENT DATE: 20160425
